FAERS Safety Report 23621165 (Version 1)
Quarter: 2024Q1

REPORT INFORMATION
  Report Type: Spontaneous
  Country: US (occurrence: US)
  Receive Date: 20240312
  Receipt Date: 20240312
  Transmission Date: 20240410
  Serious: Yes (Other)
  Sender: FDA-Public Use
  Company Number: US-CIPLA LTD.-2024US02473

PATIENT

DRUGS (3)
  1. DICLOFENAC [Suspect]
     Active Substance: DICLOFENAC
     Indication: Back pain
     Dosage: UNK
     Route: 061
  2. DICLOFENAC [Suspect]
     Active Substance: DICLOFENAC
     Indication: Arthralgia
  3. DICLOFENAC [Suspect]
     Active Substance: DICLOFENAC
     Indication: Pain in extremity

REACTIONS (5)
  - Breast cancer [Unknown]
  - Incision site pain [Not Recovered/Not Resolved]
  - Illness [Not Recovered/Not Resolved]
  - Arthritis [Unknown]
  - Off label use [Unknown]
